FAERS Safety Report 4266775-X (Version None)
Quarter: 2004Q1

REPORT INFORMATION
  Report Type: 
  Country: None (occurrence: None)
  Receive Date: 20040108
  Receipt Date: 20021028
  Transmission Date: 20041129
  Serious: No
  Sender: FDA-Public Use
  Company Number: US-BRISTOL-MYERS SQUIBB COMPANY-12099974

PATIENT
  Age: 75 Year
  Sex: Female
  Weight: 59 kg

DRUGS (13)
  1. CARDIOLITE [Suspect]
     Dosage: ROUTE: ^INJECTION.^ SECOND ^STRESSS^ DOSE: 38.4 MCI, LOT # 376958, EXP. 10/25/02.
     Route: 042
     Dates: start: 20021025, end: 20021025
  2. CAPTOPRIL [Concomitant]
  3. LASIX [Concomitant]
  4. METOPROLOL [Concomitant]
  5. GARLIC [Concomitant]
  6. POTASSIUM [Concomitant]
     Route: 048
  7. VITAMIN E [Concomitant]
  8. DIPYRIDAMOLE [Concomitant]
  9. CALTRATE [Concomitant]
  10. DIGOXIN [Concomitant]
  11. NORVASC [Concomitant]
     Route: 048
  12. NITROGEN [Concomitant]
     Dosage: UNIT:  MG/HR
  13. SULINDAC [Concomitant]

REACTIONS (8)
  - ASTHENIA [None]
  - CHILLS [None]
  - FEELING ABNORMAL [None]
  - FEELING COLD [None]
  - HYPOAESTHESIA [None]
  - NAUSEA [None]
  - SOMNOLENCE [None]
  - TREMOR [None]
